FAERS Safety Report 23309025 (Version 1)
Quarter: 2023Q4

REPORT INFORMATION
  Report Type: Spontaneous
  Country: NO (occurrence: NO)
  Receive Date: 20231218
  Receipt Date: 20231218
  Transmission Date: 20240109
  Serious: Yes (Other)
  Sender: FDA-Public Use
  Company Number: NO-EMA-DD-20220818-116353-125120

PATIENT
  Age: 76 Year
  Sex: Male

DRUGS (9)
  1. ENOXAPARIN [Suspect]
     Active Substance: ENOXAPARIN
     Indication: Deep vein thrombosis
     Dosage: 10000 IU/ SYRINGE X2
     Route: 058
     Dates: start: 20220317, end: 20220416
  2. ENOXAPARIN [Suspect]
     Active Substance: ENOXAPARIN
     Dosage: 8,000 IU / SYRINGE X2
     Route: 058
     Dates: start: 20220416, end: 20220626
  3. EZETIMIBE [Concomitant]
     Active Substance: EZETIMIBE
     Indication: Hyperlipidaemia
     Dosage: 10 MG, QD
  4. XALCOM [Concomitant]
     Active Substance: LATANOPROST\TIMOLOL
     Indication: Glaucoma
     Dosage: 1 10.A, QD
  5. EXELON [Concomitant]
     Active Substance: RIVASTIGMINE TARTRATE
     Indication: Dementia
     Dosage: 9.5 MG, QD
  6. XARELTO [Concomitant]
     Active Substance: RIVAROXABAN
     Indication: Thrombosis prophylaxis
     Dosage: 10 MG, QD
  7. CYANOCOBALAMIN [Concomitant]
     Active Substance: CYANOCOBALAMIN
     Indication: Vitamin B12 deficiency
     Dosage: UNK (1 INJECTION EVERY 2-3 MONTHS)
  8. SIMBRINZA [Concomitant]
     Active Substance: BRIMONIDINE TARTRATE\BRINZOLAMIDE
     Indication: Glaucoma
     Dosage: 1 DF, BID
  9. VITAMIN B12 [Concomitant]
     Active Substance: CYANOCOBALAMIN
     Indication: Vitamin B12 deficiency
     Dosage: 1 INJECTION EVERY 2-3 MONTHS

REACTIONS (7)
  - Urinary retention [Unknown]
  - Injection site induration [Not Recovered/Not Resolved]
  - Bladder hypertrophy [Unknown]
  - Bladder dysfunction [Not Recovered/Not Resolved]
  - Injection site mass [Recovering/Resolving]
  - Haematoma [Unknown]
  - Haematuria [Unknown]

NARRATIVE: CASE EVENT DATE: 20220324
